FAERS Safety Report 13153078 (Version 1)
Quarter: 2017Q1

REPORT INFORMATION
  Report Type: Other
  Country: US (occurrence: US)
  Receive Date: 20170126
  Receipt Date: 20170126
  Transmission Date: 20170428
  Serious: Yes (Hospitalization, Other)
  Sender: FDA-Public Use
  Company Number: US-SHIRE-US201700787

PATIENT
  Sex: Female

DRUGS (1)
  1. GATTEX [Suspect]
     Active Substance: TEDUGLUTIDE\WATER
     Indication: SHORT-BOWEL SYNDROME
     Dosage: .335 ML, UNKNOWN (/DAY)
     Route: 058
     Dates: start: 20160817

REACTIONS (4)
  - Decreased appetite [Unknown]
  - Rib fracture [Unknown]
  - Hip fracture [Unknown]
  - Fall [Recovered/Resolved]
